FAERS Safety Report 11334942 (Version 1)
Quarter: 2015Q3

REPORT INFORMATION
  Report Type: Spontaneous
  Country: US (occurrence: None)
  Receive Date: 20150731
  Receipt Date: 20150731
  Transmission Date: 20151125
  Serious: Yes (Disabling)
  Sender: FDA-Public Use
  Company Number: None

PATIENT
  Age: 48 Year
  Sex: Female
  Weight: 79.38 kg

DRUGS (3)
  1. ESTRADIOL. [Concomitant]
     Active Substance: ESTRADIOL
  2. ADVIL [Concomitant]
     Active Substance: IBUPROFEN
  3. NEURONTIN [Suspect]
     Active Substance: GABAPENTIN
     Indication: CERVICAL RADICULOPATHY
     Dosage: 1-2 PER DAY
     Route: 048
     Dates: start: 20150723, end: 20150728

REACTIONS (6)
  - Blood urine present [None]
  - Rectal haemorrhage [None]
  - Faeces discoloured [None]
  - Renal impairment [None]
  - Headache [None]
  - Swelling [None]

NARRATIVE: CASE EVENT DATE: 20150724
